FAERS Safety Report 9358469 (Version 1)
Quarter: 2013Q2

REPORT INFORMATION
  Report Type: Spontaneous
  Country: US (occurrence: None)
  Receive Date: 20130619
  Receipt Date: 20130619
  Transmission Date: 20140414
  Serious: No
  Sender: FDA-Public Use
  Company Number: None

PATIENT
  Age: 77 Year
  Sex: Female
  Weight: 90.72 kg

DRUGS (1)
  1. MONTELUKAST [Suspect]
     Indication: ASTHMA
     Route: 048
     Dates: start: 20130312, end: 20130513

REACTIONS (6)
  - Product substitution issue [None]
  - Product quality issue [None]
  - Drug ineffective [None]
  - Cough [None]
  - Nasal congestion [None]
  - Discomfort [None]
